FAERS Safety Report 9507842 (Version 2)
Quarter: 2013Q4

REPORT INFORMATION
  Report Type: Spontaneous
  Country: US (occurrence: US)
  Receive Date: 20130909
  Receipt Date: 20131226
  Transmission Date: 20140711
  Serious: Yes (Other)
  Sender: FDA-Public Use
  Company Number: US-PFIZER INC-2013258667

PATIENT
  Age: 72 Year
  Sex: Female
  Weight: 73.92 kg

DRUGS (5)
  1. PRISTIQ [Suspect]
     Indication: BIPOLAR DISORDER
     Dosage: 50 MG, 1X/DAY
     Route: 048
     Dates: start: 2010, end: 201308
  2. PRISTIQ [Suspect]
     Indication: DEPRESSION
     Dosage: 100 MG (BY TAKING 2 TABLETS OF 50MG), 1X/DAY
     Route: 048
     Dates: start: 201308
  3. TRAZODONE [Concomitant]
     Indication: ANXIETY
     Dosage: UNK, 1X/DAY
  4. CLONAZEPAM [Concomitant]
     Indication: ANXIETY
     Dosage: 2 MG, 2X/DAY
  5. BUSPIRONE [Concomitant]
     Indication: ANXIETY
     Dosage: 50 MG, 2X/DAY

REACTIONS (4)
  - Panic disorder [Unknown]
  - Panic attack [Unknown]
  - Drug ineffective [Unknown]
  - Off label use [Unknown]
